FAERS Safety Report 10207303 (Version 1)
Quarter: 2014Q2

REPORT INFORMATION
  Report Type: Spontaneous
  Country: US (occurrence: US)
  Receive Date: 20140530
  Receipt Date: 20140530
  Transmission Date: 20141212
  Serious: No
  Sender: FDA-Public Use
  Company Number: US-GLAXOSMITHKLINE-A1031231A

PATIENT
  Age: 65 Year
  Sex: Female

DRUGS (5)
  1. VENTOLIN [Suspect]
     Indication: PRODUCT USED FOR UNKNOWN INDICATION
     Dosage: 2PUFF AS REQUIRED
     Route: 055
     Dates: start: 201012
  2. COMBIVENT [Concomitant]
  3. ADVAIR [Concomitant]
  4. SYNTHROID [Concomitant]
  5. ALBUTEROL NEBULIZER [Concomitant]

REACTIONS (1)
  - Drug ineffective [Recovered/Resolved]
